FAERS Safety Report 10261672 (Version 1)
Quarter: 2014Q2

REPORT INFORMATION
  Report Type: Spontaneous
  Country: US (occurrence: US)
  Receive Date: 20140626
  Receipt Date: 20140626
  Transmission Date: 20141212
  Serious: Yes (Other)
  Sender: FDA-Public Use
  Company Number: US-009507513-1406USA010184

PATIENT
  Age: 59 Year
  Sex: Male
  Weight: 113.38 kg

DRUGS (2)
  1. DULERA [Suspect]
     Indication: PNEUMONIA
     Dosage: 2 INHALATIONS, TWICE A DAY
     Route: 055
     Dates: start: 201206, end: 201301
  2. DULERA [Suspect]
     Indication: ASTHMA

REACTIONS (12)
  - Chest pain [Recovered/Resolved]
  - Depression [Recovered/Resolved]
  - Dyspnoea [Recovered/Resolved]
  - Vision blurred [Recovered/Resolved]
  - Asthenia [Recovered/Resolved]
  - Dysphonia [Recovered/Resolved]
  - Oropharyngeal pain [Recovered/Resolved]
  - Nervousness [Recovered/Resolved]
  - Dizziness [Recovered/Resolved]
  - Insomnia [Recovered/Resolved]
  - Tremor [Recovered/Resolved]
  - Bronchospasm [Recovered/Resolved]
